FAERS Safety Report 24969631 (Version 2)
Quarter: 2025Q1

REPORT INFORMATION
  Report Type: Report from Study
  Country: CA (occurrence: CA)
  Receive Date: 20250214
  Receipt Date: 20250322
  Transmission Date: 20250409
  Serious: Yes (Other)
  Sender: TEVA
  Company Number: CA-TEVA-VS-3292942

PATIENT
  Age: 50 Year
  Sex: Male

DRUGS (1)
  1. AJOVY [Suspect]
     Active Substance: FREMANEZUMAB-VFRM
     Indication: Migraine prophylaxis
     Dosage: LAST DOSE ADMINISTERED DATE 28-JAN-2025, FORM STRENGTH: 225MG/1.5ML
     Route: 058
     Dates: start: 20250128

REACTIONS (15)
  - Respiratory tract infection viral [Unknown]
  - Incorrect dose administered [Unknown]
  - Chills [Not Recovered/Not Resolved]
  - Wrong technique in product usage process [Unknown]
  - Arthralgia [Unknown]
  - Bone pain [Unknown]
  - Device issue [Unknown]
  - Fatigue [Unknown]
  - Pruritus [Unknown]
  - Pyrexia [Not Recovered/Not Resolved]
  - Nasal mucosal disorder [Not Recovered/Not Resolved]
  - Rhinorrhoea [Recovered/Resolved]
  - Nasal mucosal discolouration [Recovering/Resolving]
  - Inflammation [Unknown]
  - Upper-airway cough syndrome [Not Recovered/Not Resolved]

NARRATIVE: CASE EVENT DATE: 20250101
